FAERS Safety Report 21300497 (Version 1)
Quarter: 2022Q3

REPORT INFORMATION
  Report Type: Spontaneous
  Country: US (occurrence: US)
  Receive Date: 20220907
  Receipt Date: 20220907
  Transmission Date: 20221027
  Serious: Yes (Hospitalization)
  Sender: FDA-Public Use
  Company Number: US-BRISTOL-MYERS SQUIBB COMPANY-2022-099738

PATIENT
  Age: 85 Year
  Sex: Male

DRUGS (1)
  1. REVLIMID [Suspect]
     Active Substance: LENALIDOMIDE
     Indication: Plasma cell myeloma
     Dosage: TAKE 1 CAPSULE (10MG) BY MOUTH EVERY DAY ON DAYS 1-14 OF EACH 28 DAY CYCLE (2 WEEKS ON, 2 WEEKS OFF)
     Route: 048
     Dates: start: 20220107

REACTIONS (2)
  - Constipation [Recovered/Resolved]
  - Off label use [Unknown]
